FAERS Safety Report 6264473-4 (Version None)
Quarter: 2009Q3

REPORT INFORMATION
  Report Type: 
  Country: None (occurrence: None)
  Receive Date: 20090708
  Receipt Date: 20090708
  Transmission Date: 20100115
  Serious: Yes (Life-Threatening)
  Sender: FDA-Public Use
  Company Number: None

PATIENT
  Age: 62 Year
  Sex: Female
  Weight: 64.4108 kg

DRUGS (3)
  1. COREG [Suspect]
     Indication: BLOOD PRESSURE INCREASED
     Dosage: 6.25 MG BD PO
     Route: 048
     Dates: start: 20090110, end: 20090306
  2. COREG [Suspect]
     Indication: HEART RATE INCREASED
     Dosage: 6.25 MG BD PO
     Route: 048
     Dates: start: 20090110, end: 20090306
  3. DIOVAN [Suspect]
     Dosage: 3.5 MG PO
     Route: 048

REACTIONS (8)
  - ABDOMINAL PAIN UPPER [None]
  - ABNORMAL DREAMS [None]
  - BLOOD PRESSURE INADEQUATELY CONTROLLED [None]
  - DECREASED APPETITE [None]
  - INSOMNIA [None]
  - NERVOUSNESS [None]
  - RESTLESSNESS [None]
  - WEIGHT DECREASED [None]
